FAERS Safety Report 24183854 (Version 2)
Quarter: 2024Q3

REPORT INFORMATION
  Report Type: Spontaneous
  Country: PT (occurrence: PT)
  Receive Date: 20240807
  Receipt Date: 20240807
  Transmission Date: 20241017
  Serious: Yes (Hospitalization, Other)
  Sender: PFIZER
  Company Number: PT-HIKMA PHARMACEUTICALS USA INC.-PT-H14001-24-07138

PATIENT
  Age: 61 Year
  Sex: Female

DRUGS (5)
  1. METHYLPREDNISOLONE SODIUM SUCCINATE [Suspect]
     Active Substance: METHYLPREDNISOLONE SODIUM SUCCINATE
     Indication: Cogan^s syndrome
     Dosage: UNK (PULSES)
     Route: 042
     Dates: start: 202112
  2. METHYLPREDNISOLONE SODIUM SUCCINATE [Suspect]
     Active Substance: METHYLPREDNISOLONE SODIUM SUCCINATE
     Dosage: UNK (REDUCED DOSE)
     Route: 042
  3. MYCOPHENOLATE MOFETIL [Suspect]
     Active Substance: MYCOPHENOLATE MOFETIL
     Indication: Cogan^s syndrome
     Dosage: REDUCED DOSE
  4. PREDNISOLONE [Suspect]
     Active Substance: PREDNISOLONE
     Indication: Cogan^s syndrome
     Dosage: REDUCED DOSE
  5. IMMUNE GLOBULIN NOS [Concomitant]
     Active Substance: IMMUNE GLOBULIN NOS
     Dosage: UNK
     Dates: start: 202112

REACTIONS (2)
  - Rebound effect [Unknown]
  - Off label use [Unknown]
